FAERS Safety Report 4400606-X (Version None)
Quarter: 2004Q3

REPORT INFORMATION
  Report Type: 
  Country: None (occurrence: None)
  Receive Date: 20040716
  Receipt Date: 20040716
  Transmission Date: 20050211
  Serious: No
  Sender: FDA-Public Use
  Company Number: None

PATIENT
  Age: 67 Year
  Sex: Male
  Weight: 86.1834 kg

DRUGS (1)
  1. INTEGRILIN [Suspect]
     Dosage: 10 MG/HR IV
     Route: 042
     Dates: start: 20040417, end: 20040419

REACTIONS (2)
  - CORONARY ARTERY DISEASE [None]
  - THROMBOCYTOPENIA [None]
